FAERS Safety Report 7034811-3 (Version None)
Quarter: 2010Q4

REPORT INFORMATION
  Report Type: 
  Country: None (occurrence: None)
  Receive Date: 20101008
  Receipt Date: 20100924
  Transmission Date: 20110411
  Serious: Yes (Death)
  Sender: FDA-Public Use
  Company Number: GB-BAUSCH-2010BL005436

PATIENT
  Age: 72 Year
  Sex: Female
  Weight: 70 kg

DRUGS (5)
  1. PREDNISOLONE [Suspect]
     Indication: LYMPHOMA
  2. CYCLOPHOSPHAMIDE [Suspect]
     Indication: LYMPHOMA
  3. DOXORUBICIN [Suspect]
     Indication: LYMPHOMA
  4. SPRYCEL [Suspect]
     Indication: CHRONIC MYELOID LEUKAEMIA
     Route: 048
     Dates: start: 20071101, end: 20100601
  5. VINCRISTINE SULFATE [Suspect]
     Indication: LYMPHOMA

REACTIONS (2)
  - OVARIAN CANCER [None]
  - PLEURAL EFFUSION [None]
